FAERS Safety Report 9521015 (Version 1)
Quarter: 2013Q3

REPORT INFORMATION
  Report Type: Spontaneous
  Country: US (occurrence: None)
  Receive Date: 20130911
  Receipt Date: 20130911
  Transmission Date: 20140515
  Serious: No
  Sender: FDA-Public Use
  Company Number: AEUSA201300013

PATIENT
  Sex: Female
  Weight: 108.86 kg

DRUGS (4)
  1. GAMUNEX [Suspect]
     Indication: IMMUNODEFICIENCY COMMON VARIABLE
     Route: 042
     Dates: start: 2004, end: 2011
  2. GAMUNEX-C (10 PCT) [Suspect]
     Indication: IMMUNODEFICIENCY COMMON VARIABLE
     Route: 042
     Dates: start: 2011
  3. ZOFRAN [Concomitant]
  4. CEFTRIAXONE [Concomitant]

REACTIONS (1)
  - Nausea [None]
